FAERS Safety Report 5221377-3 (Version None)
Quarter: 2007Q1

REPORT INFORMATION
  Report Type: 
  Country: None (occurrence: None)
  Receive Date: 20061201
  Receipt Date: 20060707
  Transmission Date: 20070707
  Serious: No
  Sender: FDA-Public Use
  Company Number: 2006PV017104

PATIENT
  Age: 60 Year
  Sex: Female
  Weight: 83.0083 kg

DRUGS (4)
  1. BYETTA [Suspect]
     Indication: DIABETES MELLITUS NON-INSULIN-DEPENDENT
     Dosage: 5 MCG;BID;SC
     Route: 058
     Dates: start: 20060601
  2. METFORMIN HCL [Concomitant]
  3. GLYBURIDE [Concomitant]
  4. ACIPHEX [Concomitant]

REACTIONS (12)
  - ABDOMINAL PAIN UPPER [None]
  - BLOOD GLUCOSE ABNORMAL [None]
  - DIARRHOEA [None]
  - DIVERTICULITIS [None]
  - DRUG INEFFECTIVE FOR UNAPPROVED INDICATION [None]
  - DYSPEPSIA [None]
  - INJECTION SITE HAEMORRHAGE [None]
  - INJECTION SITE PAIN [None]
  - KERATOCONJUNCTIVITIS SICCA [None]
  - NAUSEA [None]
  - SCAR PAIN [None]
  - VOMITING [None]
